FAERS Safety Report 24868838 (Version 1)
Quarter: 2025Q1

REPORT INFORMATION
  Report Type: Report from Study
  Country: US (occurrence: US)
  Receive Date: 20250121
  Receipt Date: 20250121
  Transmission Date: 20250409
  Serious: Yes (Life-Threatening)
  Sender: BAYER HEALTHCARE LLC
  Company Number: US-BAYER-2025A007314

PATIENT
  Age: 57 Year
  Sex: Male

DRUGS (7)
  1. DOCUSATE [Interacting]
     Active Substance: DOCUSATE
  2. METHADONE [Interacting]
     Active Substance: METHADONE HYDROCHLORIDE
  3. SENOKOT [Interacting]
     Active Substance: SENNOSIDES
  4. ACETAMINOPHEN [Interacting]
     Active Substance: ACETAMINOPHEN
  5. APALUTAMIDE [Interacting]
     Active Substance: APALUTAMIDE
  6. HYDROMORPHONE [Interacting]
     Active Substance: HYDROMORPHONE
  7. CANNABIS SATIVA FLOWERING TOP [Suspect]
     Active Substance: CANNABIS SATIVA FLOWERING TOP

REACTIONS (2)
  - Drug withdrawal syndrome [None]
  - Drug interaction [None]
